FAERS Safety Report 23834559 (Version 1)
Quarter: 2024Q2

REPORT INFORMATION
  Report Type: Spontaneous
  Country: BR (occurrence: BR)
  Receive Date: 20240509
  Receipt Date: 20240509
  Transmission Date: 20240716
  Serious: Yes (Other)
  Sender: FDA-Public Use
  Company Number: BR-BoehringerIngelheim-2024-BI-025634

PATIENT
  Age: 44 Year
  Sex: Female
  Weight: 52 kg

DRUGS (13)
  1. FENOTEROL HYDROBROMIDE\IPRATROPIUM BROMIDE [Suspect]
     Active Substance: FENOTEROL HYDROBROMIDE\IPRATROPIUM BROMIDE
     Indication: Asthma
     Dosage: SHE USED A PUFF OF DUOVENT N TOGETHER WITH A PUFF OF BEROTEC AEROSOL WHENEVER SHE HAD AN ASTHMA CRIS
  2. FENOTEROL HYDROBROMIDE\IPRATROPIUM BROMIDE [Suspect]
     Active Substance: FENOTEROL HYDROBROMIDE\IPRATROPIUM BROMIDE
     Dosage: WHENEVER SHE FELT THE NEED.
  3. ATROVENT [Suspect]
     Active Substance: IPRATROPIUM BROMIDE
     Indication: Asthma
     Dosage: 5 DROPS OF BEROTEC TOGETHER WITH 8 DROPS OF ATROVENT IN EACH NEBULIZATION.
  4. ATROVENT [Suspect]
     Active Substance: IPRATROPIUM BROMIDE
     Indication: Sinusitis
  5. BEROTEC [Suspect]
     Active Substance: FENOTEROL HYDROBROMIDE
     Indication: Asthma
     Dosage: 5 DROPS OF BEROTEC TOGETHER WITH 8 DROPS OF ATROVENT IN EACH NEBULIZATION.
  6. BEROTEC [Suspect]
     Active Substance: FENOTEROL HYDROBROMIDE
     Dosage: WHENEVER SHE FELT THE NEED.
  7. BEROTEC [Suspect]
     Active Substance: FENOTEROL HYDROBROMIDE
     Dosage: SHE USED A PUFF OF DUOVENT N TOGETHER WITH A PUFF OF BEROTEC AEROSOL WHENEVER SHE HAD AN ASTHMA CRIS
  8. FLURAZEPAM HYDROCHLORIDE [Suspect]
     Active Substance: FLURAZEPAM HYDROCHLORIDE
     Indication: Insomnia
     Dosage: HALF A TABLET, ONE HOUR BEFORE BEDTIME.
     Route: 048
     Dates: start: 2017
  9. SYMBICORT [Concomitant]
     Active Substance: BUDESONIDE\FORMOTEROL FUMARATE DIHYDRATE
     Indication: Asthma
     Dosage: FORM STRENGTH:?(6/200 MICROGRAMS OR 12/4000 MICROGRAMS), USE ONE PUFF IN THE MORNING AND ONE AT NIGH
  10. BECLOMETHASONE DIPROPIONATE\FORMOTEROL FUMARATE\GLYCOPYRROLATE [Concomitant]
     Active Substance: BECLOMETHASONE DIPROPIONATE\FORMOTEROL FUMARATE\GLYCOPYRROLATE
     Indication: Asthma
     Dosage: USE ONE PUFF IN THE MORNING, ONE HOUR AFTER USING SYMBICORT AND ONE PUFF IN THE EVENING, ONE HOUR BE
  11. ALBUTEROL [Concomitant]
     Active Substance: ALBUTEROL
     Indication: Productive cough
     Dosage: ONLY WHEN SHE GETS A LOT OF PHLEGM CAUSED BY ASTHMA.
  12. METAMIZOLE [Concomitant]
     Active Substance: METAMIZOLE
     Indication: Congenital scoliosis
     Dosage: 1 TABLET ORALLY IF SHE HAS BACK PAIN.
     Route: 048
  13. CAFFEINE\DIPYRONE\ORPHENADRINE [Concomitant]
     Active Substance: CAFFEINE\DIPYRONE\ORPHENADRINE
     Indication: Congenital scoliosis
     Dosage: 1 TABLET ORALLY IF SHE HAS BACK PAIN.
     Route: 048

REACTIONS (4)
  - Deafness bilateral [Not Recovered/Not Resolved]
  - Asthma [Not Recovered/Not Resolved]
  - Insomnia [Not Recovered/Not Resolved]
  - Headache [Unknown]

NARRATIVE: CASE EVENT DATE: 20200101
